FAERS Safety Report 8575375-2 (Version None)
Quarter: 2012Q3

REPORT INFORMATION
  Report Type: 
  Country: None (occurrence: None)
  Receive Date: 20120807
  Receipt Date: 20120802
  Transmission Date: 20120928
  Serious: No
  Sender: FDA-Public Use
  Company Number: US-PFIZER INC-2012188687

PATIENT
  Age: 44 Year
  Sex: Male
  Weight: 97.052 kg

DRUGS (1)
  1. EFFEXOR [Suspect]
     Indication: DEPRESSION
     Dosage: 300 MG, 1X/DAY
     Route: 048

REACTIONS (6)
  - ENERGY INCREASED [None]
  - DEPRESSION [None]
  - AFFECTIVE DISORDER [None]
  - THERAPEUTIC RESPONSE UNEXPECTED [None]
  - MUSCLE SPASMS [None]
  - LIBIDO DISORDER [None]
